FAERS Safety Report 4458270-X (Version None)
Quarter: 2004Q3

REPORT INFORMATION
  Report Type: 
  Country: None (occurrence: None)
  Receive Date: 20040922
  Receipt Date: 20040913
  Transmission Date: 20050211
  Serious: Yes (Hospitalization)
  Sender: FDA-Public Use
  Company Number: FR-2004-031948

PATIENT
  Age: 70 Year
  Sex: Female

DRUGS (6)
  1. SOTALOL HCL [Suspect]
     Dosage: ORAL
     Route: 048
     Dates: start: 20030801
  2. PRAVASTATIN [Suspect]
     Dosage: ORAL
     Route: 048
     Dates: end: 20040815
  3. PROPOFAN     /00765201/(PARACETAMOL, CHLORPHENAMINE MALEATE, DEXTROPRO [Suspect]
     Dosage: ORAL
     Route: 048
     Dates: end: 20040815
  4. LECTIL (BETAHISTINE  HYDROCHLORIDE) [Suspect]
     Dosage: ORAL
     Route: 048
  5. PARIET (RABEPRAZOLE SODIUM) [Suspect]
     Dosage: ORAL
     Route: 048
  6. DIOSMIL (DIOSMIN) [Suspect]
     Dosage: ORAL
     Route: 048
     Dates: end: 20040815

REACTIONS (5)
  - BLOOD ALKALINE PHOSPHATASE INCREASED [None]
  - C-REACTIVE PROTEIN INCREASED [None]
  - KIDNEY INFECTION [None]
  - TRANSAMINASES INCREASED [None]
  - TREMOR [None]
